FAERS Safety Report 7964123-2 (Version None)
Quarter: 2011Q4

REPORT INFORMATION
  Report Type: 
  Country: None (occurrence: None)
  Receive Date: 20111208
  Receipt Date: 20111129
  Transmission Date: 20120403
  Serious: Yes (Hospitalization)
  Sender: FDA-Public Use
  Company Number: JP-JNJFOC-20110906592

PATIENT
  Sex: Female
  Weight: 46 kg

DRUGS (21)
  1. REMICADE [Suspect]
     Indication: PSORIATIC ARTHROPATHY
     Route: 042
     Dates: start: 20101228
  2. REMICADE [Suspect]
     Route: 042
     Dates: start: 20110614
  3. REMICADE [Suspect]
     Route: 042
     Dates: start: 20101228
  4. RIFADIN [Suspect]
     Indication: TUBERCULOSIS
     Route: 048
     Dates: start: 20110909, end: 20111026
  5. VOLTAREN [Concomitant]
     Route: 048
     Dates: start: 20110822
  6. ETHAMBUTOL HYDROCHLORIDE [Suspect]
     Indication: TUBERCULOSIS
     Route: 048
     Dates: start: 20110909, end: 20111026
  7. PYRAZINAMIDE [Suspect]
     Indication: TUBERCULOSIS
     Route: 048
     Dates: start: 20110909, end: 20111026
  8. REMICADE [Suspect]
     Indication: PSORIASIS
     Route: 042
     Dates: start: 20101116
  9. REMICADE [Suspect]
     Route: 042
     Dates: start: 20110808
  10. REMICADE [Suspect]
     Route: 042
     Dates: start: 20101201
  11. REMICADE [Suspect]
     Route: 042
     Dates: start: 20101116
  12. REMICADE [Suspect]
     Route: 042
     Dates: start: 20110614
  13. REMICADE [Suspect]
     Route: 042
     Dates: start: 20110419
  14. REMICADE [Suspect]
     Route: 042
     Dates: start: 20110222
  15. ZITHROMAX [Concomitant]
     Route: 048
     Dates: start: 20110822
  16. REMICADE [Suspect]
     Route: 042
     Dates: start: 20110222
  17. REMICADE [Suspect]
     Route: 042
     Dates: start: 20101201
  18. NEOISCOTIN [Suspect]
     Indication: TUBERCULOSIS
     Route: 048
     Dates: start: 20110909, end: 20111026
  19. NEOISCOTIN [Suspect]
     Route: 048
     Dates: start: 20101025, end: 20110517
  20. REMICADE [Suspect]
     Route: 042
     Dates: start: 20110808
  21. REMICADE [Suspect]
     Route: 042
     Dates: start: 20110419

REACTIONS (3)
  - HEPATIC FUNCTION ABNORMAL [None]
  - ASCITES [None]
  - PERITONEAL TUBERCULOSIS [None]
